FAERS Safety Report 5579917-0 (Version None)
Quarter: 2008Q1

REPORT INFORMATION
  Report Type: 
  Country: None (occurrence: None)
  Receive Date: 20080103
  Receipt Date: 20071218
  Transmission Date: 20080703
  Serious: Yes (Life-Threatening, Hospitalization)
  Sender: FDA-Public Use
  Company Number: FR-BAYER-200718035GPV

PATIENT
  Age: 65 Year
  Sex: Female

DRUGS (13)
  1. CIPROFLOXACIN HCL [Suspect]
     Indication: PYREXIA
     Dosage: UNIT DOSE: 750 MG
     Route: 048
     Dates: start: 20071031, end: 20071108
  2. ORELOX [Suspect]
     Indication: PYREXIA
     Dosage: UNIT DOSE: 100 MG
     Route: 048
     Dates: start: 20071031, end: 20071106
  3. VELCADE [Suspect]
     Indication: MULTIPLE MYELOMA
     Route: 042
     Dates: start: 20071023, end: 20071106
  4. DEXAMETHASONE TAB [Suspect]
     Indication: MULTIPLE MYELOMA
     Dosage: TOTAL DAILY DOSE: 20 MG  UNIT DOSE: 20 MG
     Route: 065
     Dates: start: 20071023, end: 20071106
  5. IBUPROFEN [Concomitant]
     Indication: BONE PAIN
     Route: 065
  6. CELEBREX [Concomitant]
     Indication: DRUG USE FOR UNKNOWN INDICATION
     Route: 065
  7. ZELITREX [Concomitant]
     Indication: DRUG USE FOR UNKNOWN INDICATION
     Route: 065
     Dates: start: 20071023
  8. ACETAMINOPHEN AND TRAMADOL HCL [Concomitant]
     Indication: DRUG USE FOR UNKNOWN INDICATION
     Route: 065
     Dates: start: 20071023
  9. MOPRAL [Concomitant]
     Indication: DRUG USE FOR UNKNOWN INDICATION
     Route: 065
     Dates: start: 20071023
  10. ROCEPHIN [Concomitant]
     Indication: DRUG USE FOR UNKNOWN INDICATION
     Route: 065
     Dates: start: 20071106
  11. LASILIX [Concomitant]
     Indication: DRUG USE FOR UNKNOWN INDICATION
     Route: 065
     Dates: start: 20071106
  12. LOXEN [Concomitant]
     Indication: DRUG USE FOR UNKNOWN INDICATION
     Route: 065
     Dates: start: 20071106
  13. RIVOTRIL [Concomitant]
     Indication: DRUG USE FOR UNKNOWN INDICATION
     Route: 065
     Dates: start: 20071106

REACTIONS (8)
  - ASTHENIA [None]
  - CONTUSION [None]
  - CONVULSION [None]
  - EPISTAXIS [None]
  - PURPURA [None]
  - RENAL FAILURE ACUTE [None]
  - THROMBOCYTOPENIA [None]
  - THROMBOTIC THROMBOCYTOPENIC PURPURA [None]
